FAERS Safety Report 8202562-5 (Version None)
Quarter: 2012Q1

REPORT INFORMATION
  Report Type: 
  Country: None (occurrence: None)
  Receive Date: 20120312
  Receipt Date: 20120305
  Transmission Date: 20120608
  Serious: Yes (Other)
  Sender: FDA-Public Use
  Company Number: PHHY2012JP019025

PATIENT

DRUGS (7)
  1. VINCRISTINE [Interacting]
     Indication: ACUTE LYMPHOCYTIC LEUKAEMIA
  2. ITRACONAZOLE [Interacting]
  3. ITRACONAZOLE [Interacting]
  4. VINCRISTINE [Interacting]
     Indication: B-CELL LYMPHOMA
  5. VINCRISTINE [Interacting]
     Indication: LYMPHOMA
  6. FLUCONAZOLE [Suspect]
  7. VINCRISTINE [Interacting]
     Indication: PRECURSOR T-LYMPHOBLASTIC LYMPHOMA/LEUKAEMIA

REACTIONS (2)
  - ILEUS PARALYTIC [None]
  - DRUG INTERACTION [None]
